FAERS Safety Report 4521756-3 (Version None)
Quarter: 2004Q4

REPORT INFORMATION
  Report Type: 
  Country: None (occurrence: None)
  Receive Date: 20041206
  Receipt Date: 20041119
  Transmission Date: 20050328
  Serious: Yes (Other)
  Sender: FDA-Public Use
  Company Number: 2004-BP-12164RO

PATIENT
  Age: 73 Year
  Sex: Male

DRUGS (1)
  1. ALBUTEROL [Suspect]
     Indication: CHRONIC OBSTRUCTIVE AIRWAYS DISEASE
     Dosage: 10 MG IN 5 ML NACL 0.9 % X 3 DOSES (10 MG), IH
     Route: 055

REACTIONS (1)
  - ACUTE MYOCARDIAL INFARCTION [None]
